FAERS Safety Report 16135701 (Version 3)
Quarter: 2020Q2

REPORT INFORMATION
  Report Type: Report from Study
  Country: GB (occurrence: GB)
  Receive Date: 20190329
  Receipt Date: 20200405
  Transmission Date: 20200713
  Serious: Yes (Other)
  Sender: FDA-Public Use
  Company Number: PHHY2019GB059458

PATIENT
  Age: 56 Year
  Sex: Female

DRUGS (4)
  1. COSENTYX [Suspect]
     Active Substance: SECUKINUMAB
     Indication: PSORIATIC ARTHROPATHY
     Dosage: 300 MG, QMO
     Route: 058
     Dates: start: 20180618
  2. COSENTYX [Suspect]
     Active Substance: SECUKINUMAB
     Dosage: 300 MG, QW
     Route: 058
     Dates: start: 20190329
  3. COSENTYX [Suspect]
     Active Substance: SECUKINUMAB
     Dosage: 300 MG, QW (AT WEEK 0,1,2,3,4)
     Route: 058
     Dates: start: 20200330
  4. METHOTREXATE. [Concomitant]
     Active Substance: METHOTREXATE
     Dosage: UNK UNK, QW

REACTIONS (7)
  - Post procedural infection [Unknown]
  - Drug intolerance [Unknown]
  - Peripheral swelling [Unknown]
  - Rash [Recovered/Resolved]
  - Erythema [Unknown]
  - Inflammatory marker increased [Unknown]
  - Feeling hot [Unknown]
